FAERS Safety Report 8167864-X (Version None)
Quarter: 2012Q1

REPORT INFORMATION
  Report Type: 
  Country: None (occurrence: None)
  Receive Date: 20120227
  Receipt Date: 20120217
  Transmission Date: 20120608
  Serious: Yes (Other)
  Sender: FDA-Public Use
  Company Number: US-BAYER-2011-079351

PATIENT
  Sex: Female
  Weight: 93 kg

DRUGS (3)
  1. YAZ [Suspect]
     Dosage: UNK
     Dates: start: 20040101, end: 20080101
  2. DROSPIRENONE AND ETHINYL ESTRADIOL [Suspect]
  3. YASMIN [Suspect]
     Dosage: UNK
     Dates: start: 20040101, end: 20080101

REACTIONS (1)
  - CHOLECYSTECTOMY [None]
